FAERS Safety Report 9335272 (Version 2)
Quarter: 2013Q2

REPORT INFORMATION
  Report Type: Spontaneous
  Country: JP (occurrence: JP)
  Receive Date: 20130606
  Receipt Date: 20130626
  Transmission Date: 20140414
  Serious: Yes (Death, Other)
  Sender: FDA-Public Use
  Company Number: JP-BRISTOL-MYERS SQUIBB COMPANY-16200701

PATIENT
  Age: 63 Year
  Sex: Female
  Weight: 51 kg

DRUGS (9)
  1. ORENCIA FOR INJ 250 MG/VIAL [Suspect]
     Indication: RHEUMATOID ARTHRITIS
     Dosage: OVER 30 MINS?19APR,10MAY,7JUN,5JUL,2AUG,30AUG2011
     Route: 041
     Dates: start: 20110405, end: 20111004
  2. METHOTREXATE [Suspect]
     Indication: RHEUMATOID ARTHRITIS
     Route: 048
  3. TACROLIMUS [Suspect]
     Indication: RHEUMATOID ARTHRITIS
     Dosage: 1DF:9JL09-27AU09 1MG.27AU09-17OT11: 3MG.
     Route: 048
     Dates: start: 20090709, end: 20111017
  4. PREDNISOLONE [Suspect]
     Indication: RHEUMATOID ARTHRITIS
     Route: 048
     Dates: start: 20031110, end: 20111017
  5. LORFENAMIN [Concomitant]
     Indication: RHEUMATOID ARTHRITIS
  6. CALBLOCK [Concomitant]
  7. TROXIPIDE [Concomitant]
     Indication: PROPHYLAXIS
  8. BONALON [Concomitant]
  9. ADOFEED [Concomitant]
     Indication: RHEUMATOID ARTHRITIS

REACTIONS (2)
  - Pneumocystis jirovecii pneumonia [Fatal]
  - Disseminated intravascular coagulation [Unknown]
